FAERS Safety Report 5654963-7 (Version None)
Quarter: 2008Q1

REPORT INFORMATION
  Report Type: 
  Country: None (occurrence: None)
  Receive Date: 20080307
  Receipt Date: 20070926
  Transmission Date: 20080703
  Serious: No
  Sender: FDA-Public Use
  Company Number: A0684383A

PATIENT
  Age: 71 Year
  Sex: Male

DRUGS (14)
  1. REQUIP [Suspect]
     Indication: RESTLESS LEGS SYNDROME
     Dosage: 1MG PER DAY
     Route: 048
     Dates: start: 20070901
  2. OXYCODONE HCL + APAP [Concomitant]
  3. WARFARIN SODIUM [Concomitant]
  4. DOXAZOSIN MESYLATE [Concomitant]
  5. CAPTOPRIL [Concomitant]
  6. DICYCLOMINE [Concomitant]
  7. ALBUTEROL [Concomitant]
  8. HYDROCHLOROTHIAZIDE [Concomitant]
  9. CIMETIDINE [Concomitant]
  10. KLOR-CON [Concomitant]
  11. ALPRAZOLAM [Concomitant]
  12. FUROSEMIDE [Concomitant]
  13. AVODART [Concomitant]
  14. ATACAND [Concomitant]

REACTIONS (2)
  - FEELING ABNORMAL [None]
  - MYALGIA [None]
